FAERS Safety Report 5285686-4 (Version None)
Quarter: 2007Q1

REPORT INFORMATION
  Report Type: 
  Country: None (occurrence: None)
  Receive Date: 20070126
  Receipt Date: 20050630
  Transmission Date: 20070707
  Serious: No
  Sender: FDA-Public Use
  Company Number: 2006CT001164

PATIENT
  Age: 50 Year
  Sex: Female
  Weight: 65 kg

DRUGS (17)
  1. VENTAVIS [Suspect]
     Indication: PULMONARY HYPERTENSION
     Dosage: 5 UG;6XD;INH
     Route: 055
     Dates: start: 20050531, end: 20050705
  2. ALDACTONE [Concomitant]
  3. CALTRATE +D [Concomitant]
  4. WARFARIN SODIUM [Concomitant]
  5. FERROUS SULFATE [Concomitant]
  6. KLOR-CON [Concomitant]
  7. LASIX [Concomitant]
  8. MAGNESIUM OXIDE [Concomitant]
  9. OXYCONTIN [Concomitant]
  10. OXYGEN [Concomitant]
  11. PAXIL [Concomitant]
  12. PREVACID [Concomitant]
  13. QUININE SULFATE [Concomitant]
  14. SILDENAFIL CITRATE [Concomitant]
  15. TYLOX [Concomitant]
  16. ZAROXOLYN [Concomitant]
  17. SIMVASTATIN [Concomitant]

REACTIONS (2)
  - DYSPNOEA [None]
  - FATIGUE [None]
